FAERS Safety Report 19465273 (Version 2)
Quarter: 2021Q3

REPORT INFORMATION
  Report Type: Report from Study
  Country: US (occurrence: US)
  Receive Date: 20210624
  Receipt Date: 20210707
  Transmission Date: 20211014
  Serious: Yes (Hospitalization)
  Sender: FDA-Public Use
  Company Number: NVSC2021US135987

PATIENT
  Age: 47 Year
  Sex: Female

DRUGS (1)
  1. ILARIS [Suspect]
     Active Substance: CANAKINUMAB
     Indication: STILL^S DISEASE
     Dosage: 150 MG, EVERY 4 WEEKS
     Route: 065
     Dates: start: 20210520

REACTIONS (2)
  - Diarrhoea [Unknown]
  - Clostridium difficile infection [Unknown]

NARRATIVE: CASE EVENT DATE: 202106
